FAERS Safety Report 5410177-7 (Version None)
Quarter: 2007Q3

REPORT INFORMATION
  Report Type: 
  Country: None (occurrence: None)
  Receive Date: 20070809
  Receipt Date: 20070803
  Transmission Date: 20080115
  Serious: Yes (Hospitalization)
  Sender: FDA-Public Use
  Company Number: JP-BOEHRINGER INGELHEIM PHARMACEUTICALS, INC.-2007-BP-18660NB

PATIENT
  Sex: Female
  Weight: 60 kg

DRUGS (4)
  1. MICARDIS [Suspect]
     Indication: HYPERTENSION
     Route: 048
     Dates: start: 20060425, end: 20060721
  2. MERCAZOLE [Concomitant]
     Indication: HYPERTHYROIDISM
     Route: 048
     Dates: start: 20030920, end: 20060721
  3. RISEDRONATE SODIUM [Concomitant]
     Indication: OSTEOPOROSIS
     Route: 048
     Dates: start: 20031224, end: 20060721
  4. RESTOL (CALCITRIOL) [Concomitant]
     Indication: OSTEOPOROSIS
     Route: 048
     Dates: start: 20030924, end: 20060721

REACTIONS (1)
  - SUBARACHNOID HAEMORRHAGE [None]
